FAERS Safety Report 4744768-3 (Version None)
Quarter: 2005Q3

REPORT INFORMATION
  Report Type: 
  Country: None (occurrence: None)
  Receive Date: 20050815
  Receipt Date: 20050124
  Transmission Date: 20060218
  Serious: Yes (Life-Threatening)
  Sender: FDA-Public Use
  Company Number: 2005CG00187

PATIENT
  Age: 73 Year
  Sex: Female
  Weight: 58 kg

DRUGS (4)
  1. ARIMIDEX [Suspect]
     Indication: BREAST CANCER
     Route: 048
     Dates: start: 20040901, end: 20050112
  2. DAFLON [Concomitant]
     Route: 048
  3. CO-APROVEL [Concomitant]
     Route: 048
  4. BROMAZEPAM [Concomitant]
     Route: 048

REACTIONS (1)
  - PULMONARY EMBOLISM [None]
